FAERS Safety Report 4505424-X (Version None)
Quarter: 2004Q4

REPORT INFORMATION
  Report Type: 
  Country: None (occurrence: None)
  Receive Date: 20041116
  Receipt Date: 20041102
  Transmission Date: 20050328
  Serious: Yes (Other)
  Sender: FDA-Public Use
  Company Number: SUSI-2004-00723

PATIENT
  Sex: Male

DRUGS (1)
  1. PENTASA [Suspect]
     Indication: CROHN'S DISEASE
     Dosage: 3 G, DAILY, ORAL
     Route: 048
     Dates: start: 20030101

REACTIONS (3)
  - ATRIAL FIBRILLATION [None]
  - NEUTROPHIL COUNT INCREASED [None]
  - PERICARDIAL EFFUSION [None]
